FAERS Safety Report 8816490 (Version 1)
Quarter: 2012Q4

REPORT INFORMATION
  Report Type: 
  Country: CH (occurrence: None)
  Receive Date: 20120927
  Receipt Date: 20120927
  Transmission Date: 20130627
  Serious: Yes (Disabling)
  Sender: FDA-Public Use
  Company Number: DSM-2012-01010

PATIENT
  Age: 80 Year
  Sex: Female

DRUGS (3)
  1. OLMETEC [Suspect]
     Route: 048
     Dates: start: 201106
  2. HYGROTON [Suspect]
     Route: 048
     Dates: start: 201202
  3. SORTIS [Suspect]
     Route: 048

REACTIONS (1)
  - Dysaesthesia [None]
